FAERS Safety Report 4382146-X (Version None)
Quarter: 2004Q2

REPORT INFORMATION
  Report Type: 
  Country: None (occurrence: None)
  Receive Date: 20040617
  Receipt Date: 20040312
  Transmission Date: 20050107
  Serious: No
  Sender: FDA-Public Use
  Company Number: TAP2004Q00318

PATIENT
  Age: 9 Year
  Sex: Female
  Weight: 29.4838 kg

DRUGS (4)
  1. LUPRON DEPOT [Suspect]
     Indication: PRECOCIOUS PUBERTY
     Dosage: 11.25 MG, 1 IN 1 M, INTRAMUSCULAR
     Route: 030
     Dates: start: 20030801, end: 20040127
  2. FLOVENT [Concomitant]
  3. SINGULAIR [Concomitant]
  4. LIDOCAINE HCL (LIDOCAINE) [Concomitant]

REACTIONS (7)
  - ANAPHYLACTIC REACTION [None]
  - CYANOSIS [None]
  - DIZZINESS [None]
  - DYSPNOEA [None]
  - GENERALISED OEDEMA [None]
  - OROPHARYNGEAL SWELLING [None]
  - VOMITING [None]
